FAERS Safety Report 8118155-4 (Version None)
Quarter: 2012Q1

REPORT INFORMATION
  Report Type: 
  Country: None (occurrence: None)
  Receive Date: 20120207
  Receipt Date: 20120130
  Transmission Date: 20120608
  Serious: Yes (Other)
  Sender: FDA-Public Use
  Company Number: NO-BRISTOL-MYERS SQUIBB COMPANY-16124349

PATIENT

DRUGS (8)
  1. ETOPOSIDE [Suspect]
     Indication: HODGKIN'S DISEASE
     Dosage: ESCALATED CYCLES  200MG/M2
     Route: 042
  2. BLEOMYCIN SULFATE [Suspect]
     Indication: HODGKIN'S DISEASE
     Route: 042
  3. VINCRISTINE [Suspect]
     Indication: HODGKIN'S DISEASE
     Route: 042
  4. DOXORUBICIN HCL [Suspect]
     Indication: HODGKIN'S DISEASE
     Dosage: ESCALATED CYCLES  35/M2
     Route: 042
  5. NEUPOGEN [Suspect]
     Indication: HODGKIN'S DISEASE
  6. PREDNISOLONE [Suspect]
     Indication: HODGKIN'S DISEASE
     Route: 048
  7. CYCLOPHOSPHAMIDE [Suspect]
     Indication: HODGKIN'S DISEASE
     Dosage: ESCALATED CYCLES 1250MG/M2
     Route: 042
  8. PROCARBAZINE HYDROCHLORIDE [Suspect]
     Indication: HODGKIN'S DISEASE
     Route: 048

REACTIONS (1)
  - HERPES ZOSTER [None]
